FAERS Safety Report 15100439 (Version 2)
Quarter: 2018Q3

REPORT INFORMATION
  Report Type: Spontaneous
  Country: US (occurrence: US)
  Receive Date: 20180703
  Receipt Date: 20180712
  Transmission Date: 20181010
  Serious: Yes (Disabling, Other)
  Sender: FDA-Public Use
  Company Number: US-AUROBINDO-AUR-APU-2018-007848

PATIENT
  Age: 58 Year
  Sex: Female

DRUGS (1)
  1. SERTRALINE HYDROCHLORIDE TABLETS [Suspect]
     Active Substance: SERTRALINE HYDROCHLORIDE
     Indication: DEPRESSION
     Dosage: 50 MILLIGRAM, ONCE A DAY
     Route: 048

REACTIONS (12)
  - Palpitations [Recovering/Resolving]
  - Heart rate increased [Unknown]
  - Drug intolerance [Unknown]
  - Ill-defined disorder [Not Recovered/Not Resolved]
  - Feeling hot [Unknown]
  - Blood pressure increased [Unknown]
  - Headache [Unknown]
  - Weight increased [Unknown]
  - Dizziness [Unknown]
  - Feeling abnormal [Unknown]
  - Asthenia [Unknown]
  - Serotonin syndrome [Unknown]

NARRATIVE: CASE EVENT DATE: 201801
